FAERS Safety Report 24131929 (Version 2)
Quarter: 2024Q3

REPORT INFORMATION
  Report Type: Spontaneous
  Country: JP (occurrence: JP)
  Receive Date: 20240724
  Receipt Date: 20240807
  Transmission Date: 20241016
  Serious: No
  Sender: JOURNEY MEDICAL CORPORATION
  Company Number: JP-JOURNEY MEDICAL CORPORATION-2024JNY00072

PATIENT
  Age: 29 Year
  Sex: Female

DRUGS (2)
  1. QBREXZA [Suspect]
     Active Substance: GLYCOPYRRONIUM TOSYLATE
     Indication: Hyperhidrosis
     Dosage: 1 DOSAGE FORM, 1X/DAY
     Route: 061
     Dates: start: 20231017
  2. BILASTINE [Concomitant]
     Active Substance: BILASTINE
     Route: 048

REACTIONS (5)
  - Dermatitis contact [Recovered/Resolved]
  - Dermatitis contact [Recovered/Resolved]
  - Visual impairment [Recovered/Resolved]
  - Wrong technique in product usage process [Unknown]
  - Accidental exposure to product [Unknown]

NARRATIVE: CASE EVENT DATE: 20240113
